FAERS Safety Report 18914112 (Version 1)
Quarter: 2021Q1

REPORT INFORMATION
  Report Type: Spontaneous
  Country: GB (occurrence: GB)
  Receive Date: 20210218
  Receipt Date: 20210218
  Transmission Date: 20210420
  Serious: Yes (Other)
  Sender: FDA-Public Use
  Company Number: GB-BAUSCH-BL-2021-005455

PATIENT
  Age: 47 Year
  Sex: Female
  Weight: 55.33 kg

DRUGS (3)
  1. RIFAXIMIN. [Suspect]
     Active Substance: RIFAXIMIN
     Indication: GASTROINTESTINAL BACTERIAL OVERGROWTH
  2. RIFAXIMIN. [Suspect]
     Active Substance: RIFAXIMIN
     Indication: ILL-DEFINED DISORDER
     Dosage: AT A DOSE OF 3 (UNSPECIFIED UNIT) PER DAY FOR 2 WEEKS
     Route: 048
     Dates: start: 20210118, end: 20210131
  3. RIFAXIMIN. [Suspect]
     Active Substance: RIFAXIMIN
     Indication: PRODUCT USE IN UNAPPROVED INDICATION

REACTIONS (2)
  - Unevaluable event [Recovering/Resolving]
  - Intentional product use issue [Not Recovered/Not Resolved]

NARRATIVE: CASE EVENT DATE: 20210118
